FAERS Safety Report 7600666-9 (Version None)
Quarter: 2011Q3

REPORT INFORMATION
  Report Type: 
  Country: None (occurrence: None)
  Receive Date: 20110706
  Receipt Date: 20110706
  Transmission Date: 20111222
  Serious: Yes (Hospitalization)
  Sender: FDA-Public Use
  Company Number: None

PATIENT
  Age: 87 Year
  Sex: Female
  Weight: 49.8957 kg

DRUGS (1)
  1. SEPTOCAINE [Suspect]
     Indication: LOCAL ANAESTHESIA
     Dates: start: 20110523

REACTIONS (6)
  - CONFUSIONAL STATE [None]
  - COLD SWEAT [None]
  - BLOOD PRESSURE INCREASED [None]
  - NAUSEA [None]
  - LOSS OF CONSCIOUSNESS [None]
  - AMNESIA [None]
